FAERS Safety Report 25701451 (Version 1)
Quarter: 2025Q3

REPORT INFORMATION
  Report Type: Spontaneous
  Country: US (occurrence: None)
  Receive Date: 20250819
  Receipt Date: 20250819
  Transmission Date: 20251021
  Serious: Yes (Hospitalization)
  Sender: FDA-CTU
  Company Number: None

PATIENT
  Age: 68 Year
  Sex: Male
  Weight: 62.7 kg

DRUGS (4)
  1. FLUOROURACIL [Suspect]
     Active Substance: FLUOROURACIL
  2. CAMPTOSAR [Concomitant]
     Active Substance: IRINOTECAN HYDROCHLORIDE
  3. LEUCOVORIN CALCIUM [Concomitant]
     Active Substance: LEUCOVORIN CALCIUM
  4. NIVOLUMAB [Concomitant]
     Active Substance: NIVOLUMAB

REACTIONS (6)
  - Dysuria [None]
  - Pollakiuria [None]
  - Candida infection [None]
  - Urinary tract infection [None]
  - Urosepsis [None]
  - Urinary retention postoperative [None]

NARRATIVE: CASE EVENT DATE: 20250807
